FAERS Safety Report 6829920-5 (Version None)
Quarter: 2010Q3

REPORT INFORMATION
  Report Type: 
  Country: None (occurrence: None)
  Receive Date: 20100711
  Receipt Date: 20100407
  Transmission Date: 20110219
  Serious: No
  Sender: FDA-Public Use
  Company Number: US-ALLERGAN-1004263US

PATIENT
  Age: 40 Year
  Sex: Female

DRUGS (4)
  1. LATISSE [Suspect]
     Indication: GROWTH OF EYELASHES
     Dosage: 1 GTT, QHS
  2. SYNTHROID [Concomitant]
     Indication: HYPOTHYROIDISM
  3. FOLIC ACID [Concomitant]
  4. MULTI-VITAMIN [Concomitant]

REACTIONS (4)
  - EYELIDS PRURITUS [None]
  - MADAROSIS [None]
  - RASH ERYTHEMATOUS [None]
  - RASH PRURITIC [None]
